FAERS Safety Report 4897722-5 (Version None)
Quarter: 2006Q1

REPORT INFORMATION
  Report Type: 
  Country: None (occurrence: None)
  Receive Date: 20060201
  Receipt Date: 20050725
  Transmission Date: 20060701
  Serious: Yes (Hospitalization)
  Sender: FDA-Public Use
  Company Number: US-BOEHRINGER INGELHEIM PHARMACEUTICALS, INC.-2005-BP-12663BP

PATIENT
  Sex: Male
  Weight: 89.4 kg

DRUGS (15)
  1. MICARDIS [Suspect]
     Indication: CARDIOVASCULAR DISORDER
     Dates: start: 20030205, end: 20050628
  2. MICARDIS [Suspect]
     Indication: CEREBROVASCULAR ACCIDENT PROPHYLAXIS
  3. RAMIPRIL [Suspect]
     Indication: CARDIOVASCULAR DISORDER
     Dates: start: 20030205, end: 20050628
  4. RAMIPRIL [Suspect]
     Indication: CEREBROVASCULAR ACCIDENT PROPHYLAXIS
  5. IBUPROFEN [Suspect]
  6. FUROSEMIDE [Suspect]
  7. LISINOPRIL [Suspect]
  8. AVANDIA [Suspect]
  9. IV CONTRAST [Suspect]
  10. ATENOLOL [Suspect]
  11. CARVEDILOL [Concomitant]
  12. SIMVASTATIN [Concomitant]
  13. LASIX [Concomitant]
  14. POTASSIUM [Concomitant]
  15. CLONIDINE [Concomitant]

REACTIONS (1)
  - RENAL FAILURE ACUTE [None]
